FAERS Safety Report 11704203 (Version 2)
Quarter: 2015Q4

REPORT INFORMATION
  Report Type: Spontaneous
  Country: US (occurrence: US)
  Receive Date: 20151106
  Receipt Date: 20151118
  Transmission Date: 20160304
  Serious: Yes (Other)
  Sender: FDA-Public Use
  Company Number: US-TEVA-606794USA

PATIENT
  Age: 12 Year
  Sex: Male

DRUGS (1)
  1. METHOTREXATE [Suspect]
     Active Substance: METHOTREXATE
     Indication: MEDULLOBLASTOMA
     Dosage: 2MG/2ML PRESERVATIVE-FREE NORMAL SALINE FOLLOWED BY A 1ML FLUSH OF PRESERVATIVE-FREE NORMAL SALINE
     Route: 050

REACTIONS (1)
  - Abdominal pain [Unknown]
